FAERS Safety Report 24757234 (Version 2)
Quarter: 2024Q4

REPORT INFORMATION
  Report Type: Report from Study
  Country: CZ (occurrence: CZ)
  Receive Date: 20241220
  Receipt Date: 20241227
  Transmission Date: 20250115
  Serious: Yes (Other)
  Sender: UCB
  Company Number: CZ-UCBSA-2024065982

PATIENT
  Age: 65 Year
  Sex: Male

DRUGS (1)
  1. CERTOLIZUMAB PEGOL [Suspect]
     Active Substance: CERTOLIZUMAB PEGOL
     Indication: Ankylosing spondylitis
     Dosage: 200 MILLIGRAM, EV 2 WEEKS(QOW)
     Dates: start: 20220224, end: 20241122

REACTIONS (2)
  - Papillary renal cell carcinoma [Recovering/Resolving]
  - Tumour excision [Recovering/Resolving]

NARRATIVE: CASE EVENT DATE: 20241101
